FAERS Safety Report 9460622 (Version 5)
Quarter: 2021Q2

REPORT INFORMATION
  Report Type: Spontaneous
  Country: CZ (occurrence: CZ)
  Receive Date: 20130815
  Receipt Date: 20210620
  Transmission Date: 20210717
  Serious: Yes (Life-Threatening, Hospitalization)
  Sender: FDA-Public Use
  Company Number: PHHY2013CZ087042

PATIENT
  Age: 35 Year
  Sex: Female

DRUGS (3)
  1. CLINDAMYCIN HYDROCHLORIDE. [Suspect]
     Active Substance: CLINDAMYCIN HYDROCHLORIDE
     Indication: ENDOMETRITIS
     Dosage: UNK
     Route: 065
  2. CEFOTAXIME [Suspect]
     Active Substance: CEFOTAXIME SODIUM
     Indication: ENDOMETRITIS
     Dosage: UNK
     Route: 065
  3. GENTAMICIN. [Suspect]
     Active Substance: GENTAMICIN
     Indication: ENDOMETRITIS
     Dosage: UNK
     Route: 065

REACTIONS (11)
  - General physical health deterioration [Unknown]
  - Rash macular [Recovering/Resolving]
  - Pulmonary oedema [Recovered/Resolved]
  - Toxic epidermal necrolysis [Recovering/Resolving]
  - Erythema [Recovering/Resolving]
  - Hyperpyrexia [Recovered/Resolved]
  - Petechiae [Recovering/Resolving]
  - Blister [Recovering/Resolving]
  - Rash [Recovering/Resolving]
  - Skin haemorrhage [Recovering/Resolving]
  - Pulmonary embolism [Recovered/Resolved]
